FAERS Safety Report 16424167 (Version 1)
Quarter: 2019Q2

REPORT INFORMATION
  Report Type: Spontaneous
  Country: US (occurrence: US)
  Receive Date: 20190613
  Receipt Date: 20190613
  Transmission Date: 20190711
  Serious: Yes (Other)
  Sender: FDA-Public Use
  Company Number: US-TEVA-2019-US-1063036

PATIENT
  Sex: Male

DRUGS (1)
  1. FREMANEZUMAB (225 MG) [Suspect]
     Active Substance: FREMANEZUMAB-VFRM
     Dates: start: 201810

REACTIONS (2)
  - Visual impairment [Unknown]
  - Retinal vascular occlusion [Unknown]
